FAERS Safety Report 6493384-4 (Version None)
Quarter: 2009Q4

REPORT INFORMATION
  Report Type: 
  Country: None (occurrence: None)
  Receive Date: 20091214
  Receipt Date: 20091208
  Transmission Date: 20100525
  Serious: Yes (Life-Threatening)
  Sender: FDA-Public Use
  Company Number: TW-BRISTOL-MYERS SQUIBB COMPANY-14887491

PATIENT
  Age: 74 Year
  Sex: Male
  Weight: 64 kg

DRUGS (39)
  1. PACLITAXEL [Suspect]
     Indication: NON-SMALL CELL LUNG CANCER
     Dosage: DRUG WITHDRAWN: 17MAR2009
     Route: 042
     Dates: start: 20090218, end: 20090218
  2. CARBOPLATIN [Suspect]
     Indication: NON-SMALL CELL LUNG CANCER
     Dosage: DRUG WITHDRAWN: 17MAR2009
     Route: 042
     Dates: start: 20090218, end: 20090218
  3. ROXITHROMYCIN [Concomitant]
     Indication: PNEUMONIA
     Dates: start: 20090307, end: 20090308
  4. CEFOTAXIME [Concomitant]
     Indication: PNEUMONIA
     Dates: start: 20090307, end: 20090308
  5. METOCLOPRAMIDE [Concomitant]
     Indication: DECREASED APPETITE
     Dates: start: 20090225, end: 20090316
  6. AMBROXOL HCL [Concomitant]
     Indication: COUGH
     Dates: start: 20090225, end: 20090316
  7. PYRIDOXINE [Concomitant]
     Indication: POLYNEUROPATHY
     Dates: start: 20090225, end: 20090313
  8. PARACETAMOL [Concomitant]
     Indication: CATHETER PLACEMENT
     Dosage: FOR PORT A IMPLANTATION 500 MG TID FROM 02MAR09-05MAR09, FOR FEVER 500 MG PM ON 09MAR09,12MAR2009.
     Dates: start: 20090302, end: 20090312
  9. PARACETAMOL [Concomitant]
     Indication: PYREXIA
     Dosage: FOR PORT A IMPLANTATION 500 MG TID FROM 02MAR09-05MAR09, FOR FEVER 500 MG PM ON 09MAR09,12MAR2009.
     Dates: start: 20090302, end: 20090312
  10. RED BLOOD CELLS [Concomitant]
     Indication: HAEMOGLOBIN DECREASED
     Dosage: 2 DF: 2 U
     Dates: start: 20090304, end: 20090304
  11. DIPHENHYDRAMINE HCL [Concomitant]
     Indication: PROPHYLAXIS
     Dates: start: 20090304, end: 20090304
  12. ZOLPIDEM [Concomitant]
     Indication: INSOMNIA
     Dosage: AT NIGHT
     Dates: start: 20090307, end: 20090307
  13. CARBAMAZEPINE [Concomitant]
     Indication: PROPHYLAXIS
     Dosage: AT NIGHT
     Dates: start: 20090307, end: 20090307
  14. MELOXICAM [Concomitant]
     Indication: PNEUMONIA
     Dates: start: 20090308, end: 20090308
  15. CHLORZOXAZONE [Concomitant]
     Indication: FEELING OF RELAXATION
     Dates: start: 20090308, end: 20090308
  16. IPRATROPIUM BROMIDE [Concomitant]
     Dates: start: 20090308, end: 20090309
  17. TRAMADOL HCL [Concomitant]
     Indication: CHEST PAIN
     Dosage: STAT
     Dates: start: 20090308, end: 20090308
  18. FENTANYL [Concomitant]
     Indication: ENDOTRACHEAL INTUBATION
     Dates: start: 20090308, end: 20090311
  19. MIDAZOLAM HCL [Concomitant]
     Indication: ENDOTRACHEAL INTUBATION
     Dosage: 45 MG FROM 08MAR09-09MAR09 AND 4 ML/HR FROM 11MAR09 TO 12MAR09
     Dates: start: 20090308, end: 20090312
  20. ALBUTEROL [Concomitant]
     Indication: PNEUMONIA
     Dosage: 2.5 ML
     Dates: start: 20090308, end: 20090309
  21. TAZOCIN [Concomitant]
     Indication: PNEUMONIA
     Dates: start: 20090308, end: 20090313
  22. NOREPINEPHRINE BITARTRATE [Concomitant]
     Indication: BLOOD PRESSURE DECREASED
     Dates: start: 20090308, end: 20090308
  23. OMEPRAZOLE [Concomitant]
     Indication: GASTROOESOPHAGEAL REFLUX DISEASE
     Dates: start: 20090308, end: 20090308
  24. CISATRACURIUM BESILATE [Concomitant]
     Dosage: 1 DF: 2-4ML; ENDO 4 MG STAT ON 08MAR2009, AND 2-4 ML/HR FROM 09MAR2009 TO 11MAR2009
     Dates: start: 20090308, end: 20090311
  25. INSULIN [Concomitant]
     Indication: DIABETES MELLITUS
     Dosage: 8-14U TID 09MAR-15MAR, 6 U STAT12MAR, 10 U STAT13MAR,5U TID 13MAR-14MAR,100 U 3 ML/HR:13MAR09
     Dates: start: 20090309, end: 20090315
  26. SENNOSIDE A+B [Concomitant]
     Indication: CONSTIPATION
     Dosage: AT NIGHT
     Dates: start: 20090309, end: 20090312
  27. MOXIFLOXACIN HCL [Concomitant]
     Indication: PNEUMONIA
     Dates: start: 20090309, end: 20090311
  28. PANTOPRAZOLE [Concomitant]
     Indication: GASTROOESOPHAGEAL REFLUX DISEASE
     Dates: start: 20090310, end: 20090311
  29. AMLODIPINE [Concomitant]
     Indication: HYPERTENSION
     Dates: start: 20090310, end: 20090314
  30. LABETALOL HCL [Concomitant]
     Indication: HYPERTENSION
     Dosage: 12.5 MG STAT
     Dates: start: 20090310, end: 20090310
  31. TRICHLORMETHIAZIDE [Concomitant]
     Indication: HYPERTENSION
     Dates: start: 20090311, end: 20090311
  32. FUROSEMIDE [Concomitant]
     Indication: OLIGURIA
     Dates: start: 20090311, end: 20090313
  33. POTASSIUM CHLORIDE [Concomitant]
     Indication: HYPOKALAEMIA
     Dates: start: 20090311, end: 20090314
  34. GEMIFLOXACIN MESILATE [Concomitant]
     Indication: PNEUMONIA
     Dates: start: 20090312, end: 20090316
  35. SUCRALFATE [Concomitant]
     Indication: PROPHYLAXIS
     Dates: start: 20090312, end: 20090327
  36. BISACODYL [Concomitant]
     Indication: CONSTIPATION
     Dosage: 10 MG STAT
     Dates: start: 20090312, end: 20090312
  37. HUMULIN N [Concomitant]
     Indication: DIABETES MELLITUS
     Dates: start: 20090312, end: 20090314
  38. MAGNESIUM OXIDE [Concomitant]
     Indication: CONSTIPATION
     Dates: start: 20090313, end: 20090317
  39. TRANEXAMIC ACID [Concomitant]
     Indication: HAEMOPTYSIS
     Dosage: FROM 07MAR2009 TO 1OMAR2009 AND FROM 13MAR2009 TO 14MAR2009
     Dates: start: 20090307, end: 20090314

REACTIONS (1)
  - CEREBROVASCULAR ACCIDENT [None]
